FAERS Safety Report 24714425 (Version 1)
Quarter: 2024Q4

REPORT INFORMATION
  Report Type: Spontaneous
  Country: CN (occurrence: CN)
  Receive Date: 20241209
  Receipt Date: 20241209
  Transmission Date: 20250115
  Serious: Yes (Other)
  Sender: Jiangsu Hengrui Pharmaceuticals
  Company Number: CN-JIANGSU HENGRUI PHARMACEUTICALS CO., LTD.-H2024240927

PATIENT
  Age: 61 Year
  Weight: 74 kg

DRUGS (2)
  1. OXALIPLATIN [Suspect]
     Active Substance: OXALIPLATIN
     Indication: Gastric cancer
     Dosage: 220 MG
  2. DEXTROSE [Concomitant]
     Active Substance: DEXTROSE MONOHYDRATE
     Indication: Electrolyte imbalance
     Dosage: 500 ML

REACTIONS (2)
  - Infusion related reaction [Recovering/Resolving]
  - Product use in unapproved indication [Unknown]
